FAERS Safety Report 9199149 (Version 1)
Quarter: 2013Q1

REPORT INFORMATION
  Report Type: Spontaneous
  Country: US (occurrence: None)
  Receive Date: 20130325
  Receipt Date: 20130325
  Transmission Date: 20140127
  Serious: No
  Sender: FDA-Public Use
  Company Number: 2013US-004562

PATIENT
  Age: 60 Year
  Sex: Male

DRUGS (1)
  1. OMONTYS (PEGINESATIDE) SOLUTION FOR INJECTION [Suspect]
     Indication: NEPHROGENIC ANAEMIA
     Route: 042
     Dates: start: 20130125, end: 20130125

REACTIONS (2)
  - Hypersensitivity [None]
  - Pruritus generalised [None]
